FAERS Safety Report 23317434 (Version 1)
Quarter: 2023Q4

REPORT INFORMATION
  Report Type: Spontaneous
  Country: US (occurrence: None)
  Receive Date: 20231219
  Receipt Date: 20231219
  Transmission Date: 20240109
  Serious: No
  Sender: FDA-Public Use
  Company Number: US-ROCHE-3316472

PATIENT
  Sex: Male
  Weight: 47.67 kg

DRUGS (1)
  1. HEMLIBRA [Suspect]
     Active Substance: EMICIZUMAB-KXWH
     Indication: Factor VII deficiency
     Dosage: STRENGTH:150MG/ML
     Route: 058
     Dates: start: 201902

REACTIONS (2)
  - Extra dose administered [Unknown]
  - Weight decreased [Unknown]
